FAERS Safety Report 4314748-0 (Version None)
Quarter: 2004Q1

REPORT INFORMATION
  Report Type: 
  Country: None (occurrence: None)
  Receive Date: 20040308
  Receipt Date: 20040227
  Transmission Date: 20041129
  Serious: Yes (Death)
  Sender: FDA-Public Use
  Company Number: 2004AP00053

PATIENT
  Age: 66 Year
  Sex: Male

DRUGS (24)
  1. IRESSA [Suspect]
     Indication: NON-SMALL CELL LUNG CANCER RECURRENT
     Dosage: 250 MG DAILY PO
     Route: 048
     Dates: start: 20031224, end: 20040101
  2. IRESSA [Suspect]
     Indication: SQUAMOUS CELL CARCINOMA
     Dosage: 250 MG DAILY PO
     Route: 048
     Dates: start: 20031224, end: 20040101
  3. CLINDAMYCIN HCL [Concomitant]
  4. CARBENIN [Concomitant]
  5. VOLTAREN [Concomitant]
  6. BROACT [Concomitant]
  7. CIPROXAN [Concomitant]
  8. DUROTEP [Concomitant]
  9. MAGLAX [Concomitant]
  10. PURSENNID [Concomitant]
  11. GRAMALIL [Concomitant]
  12. ASTHPHYLLIN [Concomitant]
  13. THEOLONG [Concomitant]
  14. NOVAMIN [Concomitant]
  15. PARIET [Concomitant]
  16. DIGOXIN [Concomitant]
  17. NAUZELIN [Concomitant]
  18. DIPYRIDAMOLE [Concomitant]
  19. CARBOPLATIN [Concomitant]
  20. TAXOL [Concomitant]
  21. TAXOTERE [Concomitant]
  22. RADIOTHERAPY [Concomitant]
  23. CISPLATIN [Concomitant]
  24. VINORELBINE TARTRATE [Concomitant]

REACTIONS (7)
  - BLOOD PRESSURE DECREASED [None]
  - HYPOXIA [None]
  - OESOPHAGEAL PERFORATION [None]
  - PNEUMONIA [None]
  - PYREXIA [None]
  - SEPSIS [None]
  - WHITE BLOOD CELL COUNT DECREASED [None]
